FAERS Safety Report 10589382 (Version 2)
Quarter: 2015Q2

REPORT INFORMATION
  Report Type: Spontaneous
  Country: US (occurrence: US)
  Receive Date: 20141118
  Receipt Date: 20150629
  Transmission Date: 20150821
  Serious: No
  Sender: FDA-Public Use
  Company Number: US-BIOGENIDEC-2014BI120026

PATIENT
  Sex: Female

DRUGS (1)
  1. AVONEX [Suspect]
     Active Substance: INTERFERON BETA-1A
     Indication: MULTIPLE SCLEROSIS
     Route: 030
     Dates: start: 19960801, end: 19980201

REACTIONS (6)
  - Weight increased [Unknown]
  - Blindness unilateral [Recovered/Resolved]
  - Blindness [Unknown]
  - Loss of control of legs [Unknown]
  - Cognitive disorder [Recovered/Resolved]
  - Mobility decreased [Recovered/Resolved]
